FAERS Safety Report 14544759 (Version 1)
Quarter: 2018Q1

REPORT INFORMATION
  Report Type: Spontaneous
  Country: US (occurrence: US)
  Receive Date: 20180217
  Receipt Date: 20180217
  Transmission Date: 20180509
  Serious: Yes (Hospitalization)
  Sender: FDA-Public Use
  Company Number: US-TEVA-2018-US-858421

PATIENT
  Age: 85 Year
  Sex: Female

DRUGS (1)
  1. CHLORDIAZEPOXIDE. [Suspect]
     Active Substance: CHLORDIAZEPOXIDE
     Indication: ANXIETY
     Route: 065

REACTIONS (3)
  - Pruritus generalised [Unknown]
  - Wrong technique in product usage process [Unknown]
  - Anger [Unknown]
